FAERS Safety Report 4944233-4 (Version None)
Quarter: 2006Q1

REPORT INFORMATION
  Report Type: 
  Country: None (occurrence: None)
  Receive Date: 20060308
  Receipt Date: 20060227
  Transmission Date: 20060701
  Serious: Yes (Other)
  Sender: FDA-Public Use
  Company Number: 200610054BBE

PATIENT
  Age: 17 Year
  Sex: Male

DRUGS (4)
  1. GAMUNEX [Suspect]
     Indication: IMMUNODEFICIENCY
     Dosage: SEE IMAGE
     Route: 042
  2. GAMUNEX [Suspect]
  3. GAMUNEX [Suspect]
  4. GAMUNEX [Suspect]

REACTIONS (2)
  - HEPATITIS B [None]
  - INFUSION RELATED REACTION [None]
